FAERS Safety Report 19145197 (Version 1)
Quarter: 2021Q2

REPORT INFORMATION
  Report Type: Spontaneous
  Country: US (occurrence: US)
  Receive Date: 20210416
  Receipt Date: 20210416
  Transmission Date: 20210717
  Serious: Yes (Other)
  Sender: FDA-Public Use
  Company Number: US-MYLANLABS-2021M1021988

PATIENT
  Age: 46 Year
  Sex: Female

DRUGS (6)
  1. METHIMAZOLE. [Concomitant]
     Active Substance: METHIMAZOLE
     Indication: HYPERTHYROIDISM
     Dosage: 5 MILLIGRAM, QD
     Route: 048
  2. SELENIUM [Concomitant]
     Active Substance: SELENIUM
     Indication: EXOPHTHALMOS
  3. SELENIUM [Concomitant]
     Active Substance: SELENIUM
     Indication: BASEDOW^S DISEASE
     Dosage: 200 MICROGRAM, QD
     Route: 065
  4. PREDNISONE. [Suspect]
     Active Substance: PREDNISONE
     Indication: BASEDOW^S DISEASE
  5. PREDNISONE. [Suspect]
     Active Substance: PREDNISONE
     Indication: EXOPHTHALMOS
     Dosage: 30 MILLIGRAM, QD
     Route: 048
  6. METHIMAZOLE. [Concomitant]
     Active Substance: METHIMAZOLE
     Indication: BASEDOW^S DISEASE

REACTIONS (1)
  - Drug ineffective [Unknown]
